FAERS Safety Report 7082048-4 (Version None)
Quarter: 2010Q4

REPORT INFORMATION
  Report Type: 
  Country: None (occurrence: None)
  Receive Date: 20101103
  Receipt Date: 20101029
  Transmission Date: 20110411
  Serious: Yes (Other)
  Sender: FDA-Public Use
  Company Number: US-PFIZER INC-2010138277

PATIENT
  Sex: Female
  Weight: 57.143 kg

DRUGS (1)
  1. CHANTIX [Suspect]
     Indication: SMOKING CESSATION THERAPY
     Dosage: 0.5 MG, DAILY
     Route: 048
     Dates: start: 20100917, end: 20100901

REACTIONS (4)
  - DEPRESSION [None]
  - DYSGEUSIA [None]
  - HYPOAESTHESIA ORAL [None]
  - TOBACCO USER [None]
